FAERS Safety Report 10591228 (Version 1)
Quarter: 2014Q4

REPORT INFORMATION
  Report Type: Spontaneous
  Country: US (occurrence: None)
  Receive Date: 20141112
  Receipt Date: 20141112
  Transmission Date: 20150529
  Serious: Yes (Other)
  Sender: FDA-Public Use
  Company Number: US-2014-10322

PATIENT
  Age: 51 Year
  Sex: Male

DRUGS (1)
  1. SAMSCA [Suspect]
     Active Substance: TOLVAPTAN
     Indication: HYPONATRAEMIA
     Dosage: DAILY DOSE

REACTIONS (3)
  - Rapid correction of hyponatraemia [None]
  - Osmotic demyelination syndrome [None]
  - Hypernatraemia [None]
